FAERS Safety Report 5726619-3 (Version None)
Quarter: 2008Q2

REPORT INFORMATION
  Report Type: 
  Country: None (occurrence: None)
  Receive Date: 20080502
  Receipt Date: 20080501
  Transmission Date: 20081010
  Serious: Yes (Death, Hospitalization)
  Sender: FDA-Public Use
  Company Number: JP-JNJFOC-20080300530

PATIENT
  Sex: Male
  Weight: 42 kg

DRUGS (9)
  1. PALIPERIDONE [Suspect]
     Indication: SCHIZOPHRENIA
     Route: 048
  2. RONFLEMAN [Concomitant]
     Indication: INSOMNIA
     Route: 048
  3. FLUNITRAZEPAM [Concomitant]
     Indication: INSOMNIA
     Route: 048
  4. ESTAZOLAM [Concomitant]
     Indication: INSOMNIA
     Route: 048
  5. RISPERIDONE [Concomitant]
     Indication: SCHIZOPHRENIA
     Route: 048
  6. MAGTECT [Concomitant]
     Indication: GASTRIC ULCER
     Route: 048
  7. RABEPRAZOLE SODIUM [Concomitant]
     Indication: GASTRIC ULCER
     Route: 048
  8. ALLOID G [Concomitant]
     Indication: GASTRIC ULCER
     Route: 048
  9. RANITAC [Concomitant]
     Indication: GASTRITIS
     Route: 048

REACTIONS (4)
  - ADRENAL INSUFFICIENCY [None]
  - CACHEXIA [None]
  - CONGESTIVE CARDIOMYOPATHY [None]
  - GASTRIC ULCER [None]
